FAERS Safety Report 12365707 (Version 1)
Quarter: 2016Q2

REPORT INFORMATION
  Report Type: Spontaneous
  Country: US (occurrence: None)
  Receive Date: 20160512
  Receipt Date: 20160512
  Transmission Date: 20160815
  Serious: Yes (Other)
  Sender: FDA-Public Use
  Company Number: None

PATIENT
  Age: 37 Year
  Sex: Female
  Weight: 99.79 kg

DRUGS (1)
  1. OXYCODONE HYDROCHLORIDE TABLETS, 5 M G [Suspect]
     Active Substance: OXYCODONE HYDROCHLORIDE
     Indication: PAIN
     Dosage: 180 TABLET(S) 1-2 3 X DAILY TAKEN BY MOUTH
     Route: 048

REACTIONS (2)
  - Urticaria [None]
  - Acne [None]

NARRATIVE: CASE EVENT DATE: 20160503
